FAERS Safety Report 9827799 (Version 2)
Quarter: 2014Q1

REPORT INFORMATION
  Report Type: Report from Study
  Country: CA (occurrence: CA)
  Receive Date: 20140117
  Receipt Date: 20140117
  Transmission Date: 20141002
  Serious: Yes (Hospitalization, Other)
  Sender: FDA-Public Use
  Company Number: CA-BRISTOL-MYERS SQUIBB COMPANY-15672991

PATIENT
  Age: 67 Year
  Sex: Female
  Weight: 91 kg

DRUGS (14)
  1. ORENCIA [Suspect]
     Indication: RHEUMATOID ARTHRITIS
     Dosage: LAST17MR11,20FB,2MY,31JL,17SP12.INF:37.EXP:MY14,1L66305;SE14,2D73510:AP15,2J72521-JUL15?3J75953JL16
     Route: 042
     Dates: start: 20090603
  2. PREDNISONE [Suspect]
  3. THYROXINE [Concomitant]
  4. ALTACE [Concomitant]
  5. AMITRIPTYLINE [Concomitant]
  6. FLUVOXAMINE [Concomitant]
  7. LASIX [Concomitant]
  8. CALCIUM + VITAMIN D [Concomitant]
  9. DIDROCAL [Concomitant]
  10. TYLENOL #4 [Concomitant]
     Dosage: 1 DF = 4UNIT NOT MENTIONED
  11. RISEDRONATE SODIUM [Concomitant]
  12. CYMBALTA [Concomitant]
  13. DOMPERIDONE [Concomitant]
  14. CODEINE [Concomitant]

REACTIONS (10)
  - Pneumonia [Not Recovered/Not Resolved]
  - Infection [Unknown]
  - Rheumatoid arthritis [Unknown]
  - Local swelling [Unknown]
  - Erythema [Unknown]
  - Influenza [Recovered/Resolved]
  - Respiratory tract infection [Unknown]
  - Infusion site extravasation [Unknown]
  - Sinusitis [Not Recovered/Not Resolved]
  - Ear infection [Not Recovered/Not Resolved]
